FAERS Safety Report 5086003-5 (Version None)
Quarter: 2006Q3

REPORT INFORMATION
  Report Type: 
  Country: None (occurrence: None)
  Receive Date: 20060817
  Receipt Date: 20060802
  Transmission Date: 20061208
  Serious: Yes (Hospitalization)
  Sender: FDA-Public Use
  Company Number: L06-JPN-03106-01

PATIENT
  Age: 77 Year
  Sex: Female

DRUGS (1)
  1. CARBAMAZEPINE [Suspect]
     Indication: POST HERPETIC NEURALGIA
     Dosage: 200 MG QD

REACTIONS (17)
  - BLOOD PH DECREASED [None]
  - BLOOD PRESSURE SYSTOLIC DECREASED [None]
  - BODY TEMPERATURE DECREASED [None]
  - COLD AGGLUTININS POSITIVE [None]
  - COMA [None]
  - DEHYDRATION [None]
  - DIABETES MELLITUS INSULIN-DEPENDENT [None]
  - DIABETIC KETOACIDOSIS [None]
  - DRUG HYPERSENSITIVITY [None]
  - EPIGASTRIC DISCOMFORT [None]
  - HAEMOLYTIC ANAEMIA [None]
  - HERPES VIRUS INFECTION [None]
  - HUMAN HERPESVIRUS 6 INFECTION [None]
  - IMPAIRED INSULIN SECRETION [None]
  - PANCREATIC ENZYMES INCREASED [None]
  - PANCREATIC INJURY [None]
  - THROMBOCYTOPENIA [None]
